FAERS Safety Report 9607397 (Version 1)
Quarter: 2013Q4

REPORT INFORMATION
  Report Type: Spontaneous
  Country: US (occurrence: None)
  Receive Date: 20131007
  Receipt Date: 20131007
  Transmission Date: 20140711
  Serious: Yes (Disabling)
  Sender: FDA-Public Use
  Company Number: None

PATIENT
  Age: 52 Year
  Sex: Male
  Weight: 65.77 kg

DRUGS (1)
  1. GATIFLOXACIN [Suspect]
     Indication: PROSTATITIS
     Route: 048

REACTIONS (9)
  - Immune system disorder [None]
  - Impaired healing [None]
  - Raynaud^s phenomenon [None]
  - Fibromyalgia [None]
  - Neuropathy peripheral [None]
  - Fatigue [None]
  - Cluster headache [None]
  - Visual impairment [None]
  - Skin infection [None]
